FAERS Safety Report 7157917-7 (Version None)
Quarter: 2010Q4

REPORT INFORMATION
  Report Type: 
  Country: None (occurrence: None)
  Receive Date: 20101214
  Receipt Date: 20101209
  Transmission Date: 20110411
  Serious: Yes (Hospitalization)
  Sender: FDA-Public Use
  Company Number: FR-MERCK-1012FRA00062

PATIENT
  Sex: Male

DRUGS (1)
  1. JANUMET [Suspect]
     Route: 048

REACTIONS (1)
  - INTESTINAL PERFORATION [None]
